FAERS Safety Report 16095058 (Version 1)
Quarter: 2019Q2

REPORT INFORMATION
  Report Type: Spontaneous
  Country: US (occurrence: US)
  Receive Date: 20190320
  Receipt Date: 20190320
  Transmission Date: 20190711
  Serious: No
  Sender: FDA-Public Use
  Company Number: None

PATIENT
  Age: 60 Year
  Sex: Female
  Weight: 72 kg

DRUGS (10)
  1. OXYCODON 3 A DAY AS NEEDED [Concomitant]
  2. ACYCLOVIR 400 MG 2 A DAY [Concomitant]
  3. OMEPRAZOLE 40MG 1 A DAY [Concomitant]
  4. INVOKAMET 50 MG 1 A DAY [Concomitant]
  5. LEVEMIR 25 UNIT AT BEDTIME [Concomitant]
  6. ASPIRIN 81 MG 1 A DAY [Concomitant]
  7. CELECOXIB 100 MG 2 A DAY [Concomitant]
  8. FOLIC ACID 1MG A DAY [Concomitant]
  9. BUTRAN 20MG PATCH 1 WEEKLY [Concomitant]
  10. BUPRENORPHINE. [Suspect]
     Active Substance: BUPRENORPHINE
     Indication: PAIN
     Dosage: ?          QUANTITY:1 PATCH(ES);OTHER FREQUENCY:WEEKLY;?
     Route: 062
     Dates: start: 20190212, end: 20190312

REACTIONS (4)
  - Device adhesion issue [None]
  - Device defective [None]
  - Drug ineffective [None]
  - Application site rash [None]

NARRATIVE: CASE EVENT DATE: 20190212
